FAERS Safety Report 7350592-8 (Version None)
Quarter: 2011Q1

REPORT INFORMATION
  Report Type: 
  Country: None (occurrence: None)
  Receive Date: 20110303
  Receipt Date: 20110221
  Transmission Date: 20110831
  Serious: Yes (Hospitalization)
  Sender: FDA-Public Use
  Company Number: 027251

PATIENT
  Age: 30 Year
  Sex: Male

DRUGS (1)
  1. XYZAL [Suspect]
     Indication: PRURITUS
     Dosage: (5 MG QD ORAL)
     Route: 048
     Dates: start: 20110112

REACTIONS (5)
  - CELLULITIS [None]
  - BLOOD CREATINE PHOSPHOKINASE INCREASED [None]
  - PYREXIA [None]
  - LOCAL SWELLING [None]
  - PAIN IN EXTREMITY [None]
